FAERS Safety Report 14749657 (Version 2)
Quarter: 2018Q4

REPORT INFORMATION
  Report Type: Spontaneous
  Country: DK (occurrence: DK)
  Receive Date: 20180411
  Receipt Date: 20181214
  Transmission Date: 20190204
  Serious: Yes (Death, Hospitalization)
  Sender: FDA-Public Use
  Company Number: DK-BAXTER-2018BAX010794

PATIENT
  Age: 69 Year
  Sex: Male

DRUGS (25)
  1. SENDOXAN [Suspect]
     Active Substance: CYCLOPHOSPHAMIDE
     Indication: B-CELL LYMPHOMA
     Route: 048
     Dates: start: 2004, end: 2009
  2. RITUXIMAB. [Suspect]
     Active Substance: RITUXIMAB
     Route: 048
     Dates: start: 2004, end: 2009
  3. DOXORUBICIN [Suspect]
     Active Substance: DOXORUBICIN
     Indication: PRODUCT USED FOR UNKNOWN INDICATION
     Dosage: TREATED WITH SIX SERIES
     Route: 065
     Dates: start: 201102
  4. FLUDARABINE [Concomitant]
     Active Substance: FLUDARABINE PHOSPHATE
     Indication: LYMPHOMA
     Route: 048
  5. VINCRISTINE SULFATE. [Suspect]
     Active Substance: VINCRISTINE SULFATE
     Indication: B-CELL LYMPHOMA
     Dosage: RECEIVED TWO TREATMENTS
     Route: 065
     Dates: start: 201001
  6. VORICONAZOLE. [Suspect]
     Active Substance: VORICONAZOLE
     Indication: CEREBRAL ASPERGILLOSIS
     Route: 065
  7. SENDOXAN [Suspect]
     Active Substance: CYCLOPHOSPHAMIDE
     Dosage: RECEIVED FOR SIX TIMES
     Route: 065
     Dates: end: 201008
  8. RITUXIMAB. [Suspect]
     Active Substance: RITUXIMAB
     Dosage: RECEIVED TWO TREATMENTS
     Route: 065
     Dates: start: 201001
  9. RITUXIMAB. [Suspect]
     Active Substance: RITUXIMAB
     Dosage: TREATED WITH SIX SERIES
     Route: 065
     Dates: start: 201102
  10. RITUXIMAB. [Suspect]
     Active Substance: RITUXIMAB
     Route: 065
  11. DAPSONE. [Concomitant]
     Active Substance: DAPSONE
     Indication: ANTIFUNGAL PROPHYLAXIS
     Route: 065
     Dates: start: 2012
  12. CHLORAMBUCIL [Suspect]
     Active Substance: CHLORAMBUCIL
     Indication: B-CELL LYMPHOMA
     Route: 048
     Dates: start: 2004, end: 2009
  13. RITUXIMAB. [Suspect]
     Active Substance: RITUXIMAB
     Dosage: RECEIVED FOR SIX TIMES
     Route: 065
     Dates: end: 201008
  14. VORICONAZOLE. [Suspect]
     Active Substance: VORICONAZOLE
     Indication: ASPERGILLUS INFECTION
     Route: 065
  15. PYRIMETHAMINE [Concomitant]
     Active Substance: PYRIMETHAMINE
     Indication: TOXOPLASMOSIS
     Route: 065
  16. SENDOXAN [Suspect]
     Active Substance: CYCLOPHOSPHAMIDE
     Dosage: RECEIVED SIX SERIES
     Route: 065
     Dates: start: 201102
  17. RITUXIMAB. [Suspect]
     Active Substance: RITUXIMAB
     Indication: B-CELL LYMPHOMA
     Dosage: MAINTENANCE THERAPY EVERY THREE MONTHS
     Route: 048
  18. FLUDARABINE [Suspect]
     Active Substance: FLUDARABINE PHOSPHATE
     Indication: PRODUCT USED FOR UNKNOWN INDICATION
     Route: 065
     Dates: end: 201008
  19. VINCRISTINE SULFATE. [Suspect]
     Active Substance: VINCRISTINE SULFATE
     Route: 048
  20. PREDNISOLONE. [Suspect]
     Active Substance: PREDNISOLONE
     Dosage: RECEIVED TWO TREATMENTS
     Route: 065
     Dates: start: 201001
  21. VINCRISTINE SULFATE. [Suspect]
     Active Substance: VINCRISTINE SULFATE
     Dosage: RECEIVED SIX SERIES
     Route: 065
     Dates: start: 201102
  22. SENDOXAN [Suspect]
     Active Substance: CYCLOPHOSPHAMIDE
     Indication: B-CELL LYMPHOMA
     Dosage: RECEIVED TWO TREATMENTS
     Route: 065
     Dates: start: 201001
  23. PREDNISOLONE. [Suspect]
     Active Substance: PREDNISOLONE
     Indication: B-CELL LYMPHOMA
     Dosage: RECEIVED SIX SERIES
     Route: 048
     Dates: start: 201102
  24. PREDNISONE. [Suspect]
     Active Substance: PREDNISONE
     Indication: B-CELL LYMPHOMA
     Route: 065
  25. CLINDAMYCIN. [Concomitant]
     Active Substance: CLINDAMYCIN
     Indication: TOXOPLASMOSIS
     Route: 065

REACTIONS (11)
  - Confusional state [Fatal]
  - Disease progression [Fatal]
  - Cough [Recovered/Resolved]
  - Aphasia [Fatal]
  - Cerebral aspergillosis [Fatal]
  - Drug ineffective [Fatal]
  - Pneumocystis jirovecii pneumonia [Recovered/Resolved]
  - Neurological symptom [Fatal]
  - Apraxia [Fatal]
  - Pyrexia [Recovered/Resolved]
  - Lung infiltration [Recovered/Resolved]

NARRATIVE: CASE EVENT DATE: 201205
